FAERS Safety Report 4828633-9 (Version None)
Quarter: 2005Q4

REPORT INFORMATION
  Report Type: 
  Country: None (occurrence: None)
  Receive Date: 20051115
  Receipt Date: 20051020
  Transmission Date: 20060501
  Serious: Yes (Death, Hospitalization)
  Sender: FDA-Public Use
  Company Number: PHHO2005PE16678

PATIENT
  Age: 33 Year
  Sex: Female

DRUGS (2)
  1. GLEEVEC [Suspect]
     Indication: GASTROINTESTINAL STROMAL TUMOUR
     Dosage: 400 MG, QD
     Route: 048
     Dates: start: 20050913, end: 20050922
  2. RANITIDINE [Concomitant]
     Indication: PROPHYLAXIS
     Dates: start: 20050913

REACTIONS (7)
  - ABDOMINAL PAIN [None]
  - ANAEMIA [None]
  - DEPRESSED LEVEL OF CONSCIOUSNESS [None]
  - HYPONATRAEMIA [None]
  - INTRA-ABDOMINAL HAEMORRHAGE [None]
  - MALIGNANT NEOPLASM PROGRESSION [None]
  - NAUSEA [None]
